FAERS Safety Report 6601427-X (Version None)
Quarter: 2010Q1

REPORT INFORMATION
  Report Type: 
  Country: None (occurrence: None)
  Receive Date: 20100225
  Receipt Date: 20100215
  Transmission Date: 20100710
  Serious: Yes (Hospitalization, Other)
  Sender: FDA-Public Use
  Company Number: DK-NOVOPROD-300509

PATIENT
  Age: 23 Year
  Sex: Female
  Weight: 68 kg

DRUGS (4)
  1. NOVORAPID [Suspect]
     Indication: DRUG USE FOR UNKNOWN INDICATION
     Dosage: 43 IU, QD
     Route: 058
  2. NOVORAPID [Suspect]
     Dosage: 74 UNK, UNK
     Route: 058
  3. LEVEMIR [Suspect]
     Indication: DRUG USE FOR UNKNOWN INDICATION
     Dosage: 30 IU, QD
     Route: 058
  4. LEVEMIR [Suspect]
     Dosage: 56 IU, QD

REACTIONS (4)
  - CAESAREAN SECTION [None]
  - DELAYED DELIVERY [None]
  - DRUG EXPOSURE BEFORE PREGNANCY [None]
  - PREGNANCY INDUCED HYPERTENSION [None]
